FAERS Safety Report 4647263-5 (Version None)
Quarter: 2005Q2

REPORT INFORMATION
  Report Type: 
  Country: None (occurrence: None)
  Receive Date: 20050428
  Receipt Date: 20050421
  Transmission Date: 20051028
  Serious: Yes (Hospitalization)
  Sender: FDA-Public Use
  Company Number: 200513527GDDC

PATIENT
  Age: 82 Year
  Sex: Male

DRUGS (7)
  1. NATRIX [Suspect]
     Route: 048
     Dates: start: 20040902
  2. COVERSYL [Suspect]
     Indication: HYPERTENSION
     Route: 048
     Dates: start: 20040722, end: 20041119
  3. ZYLORIC [Concomitant]
  4. PANALDINE [Concomitant]
  5. DEPAS [Concomitant]
  6. GASTER [Concomitant]
  7. NIVADIL [Concomitant]

REACTIONS (3)
  - BRADYCARDIA [None]
  - LOSS OF CONSCIOUSNESS [None]
  - RENAL FAILURE ACUTE [None]
